FAERS Safety Report 14473081 (Version 11)
Quarter: 2019Q2

REPORT INFORMATION
  Report Type: Spontaneous
  Country: US (occurrence: US)
  Receive Date: 20180201
  Receipt Date: 20190411
  Transmission Date: 20190711
  Serious: No
  Sender: FDA-Public Use
  Company Number: US-JNJFOC-20180104295

PATIENT
  Sex: Female
  Weight: 61.24 kg

DRUGS (9)
  1. IMODIUM MULTI-SYMPTOM RELIEF [Suspect]
     Active Substance: DIMETHICONE\LOPERAMIDE HYDROCHLORIDE
     Indication: DIARRHOEA
     Dosage: 2 MG AFTER LOOSE STOOL AND ONE AFTER EACH STOOL
     Route: 048
     Dates: start: 20190123
  2. SIMVASTATIN. [Concomitant]
     Active Substance: SIMVASTATIN
     Indication: CEREBROVASCULAR ACCIDENT PROPHYLAXIS
     Route: 065
  3. PANTOPRAZOLE [Concomitant]
     Active Substance: PANTOPRAZOLE
     Indication: GASTROOESOPHAGEAL REFLUX DISEASE
     Route: 065
  4. EXCEDRIN [Concomitant]
     Active Substance: ACETAMINOPHEN\ASPIRIN\CAFFEINE
     Indication: MIGRAINE
     Route: 065
  5. TYLENOL [Concomitant]
     Active Substance: ACETAMINOPHEN
     Indication: MIGRAINE
     Route: 065
  6. IMODIUM MULTI-SYMPTOM RELIEF [Suspect]
     Active Substance: DIMETHICONE\LOPERAMIDE HYDROCHLORIDE
     Indication: IRRITABLE BOWEL SYNDROME
     Dosage: AROUND 11-DEC-2017; 2 MG/125 MG 2 AFTER FIRST STOOL AND 1 AFTER THAT; THEN 4 IN 24 HOURS
     Route: 048
     Dates: start: 201712
  7. ASPIRIN. [Concomitant]
     Active Substance: ASPIRIN
     Indication: MIGRAINE
     Route: 065
  8. IMODIUM MULTI-SYMPTOM RELIEF [Suspect]
     Active Substance: DIMETHICONE\LOPERAMIDE HYDROCHLORIDE
     Indication: IRRITABLE BOWEL SYNDROME
     Dosage: 2 MG AFTER LOOSE STOOL AND ONE AFTER EACH STOOL
     Route: 048
     Dates: start: 20190123
  9. IMODIUM MULTI-SYMPTOM RELIEF [Suspect]
     Active Substance: DIMETHICONE\LOPERAMIDE HYDROCHLORIDE
     Indication: DIARRHOEA
     Dosage: AROUND 11-DEC-2017; 2 MG/125 MG 2 AFTER FIRST STOOL AND 1 AFTER THAT; THEN 4 IN 24 HOURS
     Route: 048
     Dates: start: 201712

REACTIONS (9)
  - Dizziness [Unknown]
  - Musculoskeletal chest pain [Not Recovered/Not Resolved]
  - Malaise [Recovered/Resolved]
  - Flatulence [Unknown]
  - Drug ineffective [Unknown]
  - Product quality issue [Unknown]
  - Product tampering [Unknown]
  - Abdominal pain [Unknown]
  - Abdominal distension [Not Recovered/Not Resolved]
